FAERS Safety Report 23841438 (Version 1)
Quarter: 2024Q2

REPORT INFORMATION
  Report Type: Spontaneous
  Country: US (occurrence: None)
  Receive Date: 20240509
  Receipt Date: 20240509
  Transmission Date: 20240716
  Serious: Yes (Other)
  Sender: FDA-Public Use
  Company Number: None

PATIENT
  Age: 52 Year
  Sex: Female
  Weight: 64.35 kg

DRUGS (9)
  1. BRIXADI [Suspect]
     Active Substance: BUPRENORPHINE
     Indication: Drug use disorder
     Route: 030
     Dates: start: 20240403, end: 20240429
  2. AMLODIPINE [Concomitant]
     Active Substance: AMLODIPINE BESYLATE
  3. ESTRADIOL [Concomitant]
     Active Substance: ESTRADIOL
  4. DULOXETINE [Concomitant]
     Active Substance: DULOXETINE
  5. LINZESS [Concomitant]
     Active Substance: LINACLOTIDE
  6. GABAPENTIN [Concomitant]
     Active Substance: GABAPENTIN
  7. DICLOFENAC SODIUM [Concomitant]
     Active Substance: DICLOFENAC\DICLOFENAC SODIUM
  8. IRON [Concomitant]
     Active Substance: IRON
  9. LEVOMEFOLATE CALCIUM [Concomitant]
     Active Substance: LEVOMEFOLATE CALCIUM

REACTIONS (3)
  - Fatigue [None]
  - Loss of personal independence in daily activities [None]
  - Insomnia [None]

NARRATIVE: CASE EVENT DATE: 20240415
